FAERS Safety Report 18111203 (Version 1)
Quarter: 2020Q3

REPORT INFORMATION
  Report Type: Spontaneous
  Country: NL (occurrence: NL)
  Receive Date: 20200804
  Receipt Date: 20200804
  Transmission Date: 20201103
  Serious: Yes (Disabling, Other)
  Sender: FDA-Public Use
  Company Number: NL-FRESENIUS KABI-FK202008019

PATIENT
  Age: 13 Year
  Sex: Female

DRUGS (5)
  1. AMPHOTERICIN B. [Suspect]
     Active Substance: AMPHOTERICIN B
     Dosage: UNKNOWN
     Route: 050
  2. AMPHOTERICIN B. [Suspect]
     Active Substance: AMPHOTERICIN B
     Indication: ASPERGILLUS INFECTION
     Route: 065
  3. FLUCYTOSINE. [Suspect]
     Active Substance: FLUCYTOSINE
     Indication: ASPERGILLUS INFECTION
     Route: 065
  4. CASPOFUNGIN (MANUFACTURER UNKNOWN) [Suspect]
     Active Substance: CASPOFUNGIN
     Dosage: UNKNOWN
     Route: 050
  5. CASPOFUNGIN (MANUFACTURER UNKNOWN) [Suspect]
     Active Substance: CASPOFUNGIN
     Indication: ASPERGILLUS INFECTION
     Route: 042

REACTIONS (4)
  - Frontotemporal dementia [Not Recovered/Not Resolved]
  - Bone deformity [Unknown]
  - Muscle spasticity [Not Recovered/Not Resolved]
  - Epilepsy [Not Recovered/Not Resolved]
